FAERS Safety Report 5840648-0 (Version None)
Quarter: 2008Q3

REPORT INFORMATION
  Report Type: 
  Country: None (occurrence: None)
  Receive Date: 20080811
  Receipt Date: 20080731
  Transmission Date: 20090109
  Serious: Yes (Other)
  Sender: FDA-Public Use
  Company Number: PHHY2008DE16386

PATIENT
  Age: 74 Year
  Sex: Female

DRUGS (1)
  1. FEMARA [Suspect]
     Dosage: UNK
     Route: 048
     Dates: start: 20070314

REACTIONS (2)
  - NEUROPATHY PERIPHERAL [None]
  - SOMNOLENCE [None]
